FAERS Safety Report 14289402 (Version 1)
Quarter: 2017Q4

REPORT INFORMATION
  Report Type: Spontaneous
  Country: PT (occurrence: PT)
  Receive Date: 20171215
  Receipt Date: 20171215
  Transmission Date: 20180321
  Serious: Yes (Death, Hospitalization, Other)
  Sender: FDA-Public Use
  Company Number: PT-UNITED THERAPEUTICS-UNT-2017-012528

PATIENT
  Age: 53 Year
  Sex: Female

DRUGS (1)
  1. REMODULIN [Suspect]
     Active Substance: TREPROSTINIL
     Indication: PULMONARY ARTERIAL HYPERTENSION
     Dosage: 0.056 ?G/KG, CONTINUING
     Route: 058
     Dates: start: 20151014

REACTIONS (6)
  - Pulmonary arterial hypertension [Fatal]
  - Treatment noncompliance [Unknown]
  - Mental disorder [Recovering/Resolving]
  - Therapy cessation [Unknown]
  - Respiratory failure [Unknown]
  - Cardiac failure [Unknown]

NARRATIVE: CASE EVENT DATE: 201708
